FAERS Safety Report 6522461-4 (Version None)
Quarter: 2009Q4

REPORT INFORMATION
  Report Type: 
  Country: None (occurrence: None)
  Receive Date: 20091230
  Receipt Date: 20091211
  Transmission Date: 20100525
  Serious: No
  Sender: FDA-Public Use
  Company Number: A0836841A

PATIENT
  Age: 32 Year
  Sex: Female

DRUGS (2)
  1. ZANAMIVIR [Suspect]
     Indication: H1N1 INFLUENZA
     Dosage: 600MG TWICE PER DAY
     Route: 042
     Dates: start: 20091105, end: 20091110
  2. INTUBATION [Concomitant]

REACTIONS (1)
  - BRADYCARDIA [None]
